FAERS Safety Report 26053103 (Version 1)
Quarter: 2025Q4

REPORT INFORMATION
  Report Type: Spontaneous
  Country: US (occurrence: None)
  Receive Date: 20251114
  Receipt Date: 20251114
  Transmission Date: 20260118
  Serious: Yes (Death)
  Sender: FDA-CTU
  Company Number: None

PATIENT
  Age: 13 Year
  Sex: Male
  Weight: 31.4 kg

DRUGS (1)
  1. TABLOID [Suspect]
     Active Substance: THIOGUANINE
     Indication: Non-Hodgkin^s lymphoma
     Dosage: 20 MG 2  DAYS EVERY WEEK
     Dates: start: 20251002, end: 20251018

REACTIONS (1)
  - Death [None]

NARRATIVE: CASE EVENT DATE: 20251010
